FAERS Safety Report 11195368 (Version 1)
Quarter: 2015Q2

REPORT INFORMATION
  Report Type: Spontaneous
  Country: US (occurrence: None)
  Receive Date: 20150615
  Receipt Date: 20150615
  Transmission Date: 20150821
  Serious: Yes (Disabling)
  Sender: FDA-Public Use
  Company Number: None

PATIENT
  Age: 38 Year
  Sex: Male
  Weight: 113.4 kg

DRUGS (7)
  1. IBUPROFEN. [Concomitant]
     Active Substance: IBUPROFEN
  2. LYRICA [Concomitant]
     Active Substance: PREGABALIN
  3. ORENCIA [Suspect]
     Active Substance: ABATACEPT
     Indication: SPONDYLOARTHROPATHY
     Route: 030
     Dates: start: 20130626, end: 20131113
  4. LORTAB [Concomitant]
     Active Substance: ACETAMINOPHEN\HYDROCODONE BITARTRATE
  5. FLEXIRILL [Concomitant]
  6. ORENCIA [Suspect]
     Active Substance: ABATACEPT
     Indication: SJOGREN^S SYNDROME
     Route: 030
     Dates: start: 20130626, end: 20131113
  7. VOLTAREN [Concomitant]
     Active Substance: DICLOFENAC SODIUM

REACTIONS (5)
  - Food intolerance [None]
  - Arthralgia [None]
  - Myalgia [None]
  - Pain [None]
  - Drug intolerance [None]
